FAERS Safety Report 7369907-X (Version None)
Quarter: 2011Q1

REPORT INFORMATION
  Report Type: 
  Country: None (occurrence: None)
  Receive Date: 20110323
  Receipt Date: 20110321
  Transmission Date: 20110831
  Serious: Yes (Other)
  Sender: FDA-Public Use
  Company Number: US-CEPHALON-2011001343

PATIENT
  Sex: Male

DRUGS (3)
  1. RITUXIMAB [Concomitant]
     Indication: CHRONIC LYMPHOCYTIC LEUKAEMIA
  2. TREANDA [Suspect]
     Indication: CHRONIC LYMPHOCYTIC LEUKAEMIA
     Route: 042
     Dates: start: 20110215, end: 20110216
  3. TREANDA [Suspect]
     Route: 042
     Dates: start: 20110322

REACTIONS (2)
  - DYSPNOEA [None]
  - PLEURAL EFFUSION [None]
